FAERS Safety Report 13345862 (Version 4)
Quarter: 2017Q3

REPORT INFORMATION
  Report Type: Spontaneous
  Country: JP (occurrence: JP)
  Receive Date: 20170317
  Receipt Date: 20170714
  Transmission Date: 20171127
  Serious: Yes (Life-Threatening, Hospitalization, Disabling, Other)
  Sender: FDA-Public Use
  Company Number: JP-ELI_LILLY_AND_COMPANY-JP201703004048

PATIENT
  Age: 65 Year
  Sex: Female
  Weight: 45 kg

DRUGS (13)
  1. TAKECAB [Concomitant]
     Active Substance: VONOPRAZAN FUMURATE
     Indication: GASTRIC ULCER
     Dosage: 20 MG, EACH MORNING
     Route: 048
     Dates: start: 20160725
  2. FENTOS [Concomitant]
     Active Substance: FENTANYL
     Dosage: 2 MG, UNK
     Route: 062
  3. CYMBALTA [Concomitant]
     Active Substance: DULOXETINE HYDROCHLORIDE
     Dosage: 20 MG, UNK
     Route: 048
  4. MAGNESIUM OXIDE. [Concomitant]
     Active Substance: MAGNESIUM OXIDE
     Dosage: 1 G, TID
  5. LYRICA [Concomitant]
     Active Substance: PREGABALIN
     Dosage: 75 MG, BID
     Route: 048
  6. OXINORM                            /00045603/ [Concomitant]
     Active Substance: OXYCODONE HYDROCHLORIDE
     Indication: PAIN
     Dosage: UNK, PRN
     Route: 048
  7. ENSURE [Concomitant]
     Active Substance: AMINO ACIDS\DEXTROSE\ELECTROLYTES NOS\SOYBEAN OIL\VITAMINS
     Dosage: 250 ML, DAILY
     Route: 048
  8. ALLOID G [Concomitant]
     Active Substance: SODIUM ALGINATE
     Dosage: 10 ML, TID
     Route: 048
  9. PACLITAXEL. [Suspect]
     Active Substance: PACLITAXEL
     Indication: ADENOCARCINOMA GASTRIC
     Dosage: 100 MG, OTHER
     Route: 042
     Dates: start: 20160729, end: 20160909
  10. ADOFEED [Concomitant]
     Active Substance: FLURBIPROFEN
     Dosage: 1 DF, DAILY
     Route: 062
  11. CYRAMZA [Suspect]
     Active Substance: RAMUCIRUMAB
     Indication: ADENOCARCINOMA GASTRIC
     Dosage: 8 MG/KG, OTHER
     Route: 042
     Dates: start: 20160729, end: 20160909
  12. MEDICON                            /00048102/ [Concomitant]
     Active Substance: DEXTROMETHORPHAN HYDROBROMIDE
     Dosage: 15 MG, TID
     Route: 048
  13. DEPAS [Concomitant]
     Active Substance: ETIZOLAM
     Dosage: 0.5 MG, EACH EVENING
     Route: 048

REACTIONS (7)
  - Anaemia [Recovered/Resolved]
  - Alopecia [Not Recovered/Not Resolved]
  - White blood cell count decreased [Recovered/Resolved]
  - Neutrophil count decreased [Recovered/Resolved]
  - Neuropathy peripheral [Recovering/Resolving]
  - Malignant neoplasm progression [Unknown]
  - Oesophagobronchial fistula [Not Recovered/Not Resolved]

NARRATIVE: CASE EVENT DATE: 20160911
